FAERS Safety Report 14386681 (Version 1)
Quarter: 2018Q1

REPORT INFORMATION
  Report Type: Spontaneous
  Country: US (occurrence: US)
  Receive Date: 20180115
  Receipt Date: 20180115
  Transmission Date: 20180509
  Serious: Yes (Other)
  Sender: FDA-Public Use
  Company Number: US-SA-2017SA103805

PATIENT
  Age: 67 Year
  Sex: Female
  Weight: 87.08 kg

DRUGS (5)
  1. LEVOTHYROXINE. [Concomitant]
     Active Substance: LEVOTHYROXINE
  2. LISINOPRIL. [Concomitant]
     Active Substance: LISINOPRIL
  3. PARAPLATIN [Concomitant]
     Active Substance: CARBOPLATIN
  4. TAXOTERE [Suspect]
     Active Substance: DOCETAXEL
     Indication: BREAST CANCER FEMALE
     Route: 051
     Dates: start: 20151203, end: 20151203
  5. TAXOTERE [Suspect]
     Active Substance: DOCETAXEL
     Indication: BREAST CANCER FEMALE
     Route: 051
     Dates: start: 20150821, end: 20150821

REACTIONS (4)
  - Psychological trauma [Unknown]
  - Anxiety [Unknown]
  - Impaired quality of life [Unknown]
  - Alopecia [Not Recovered/Not Resolved]

NARRATIVE: CASE EVENT DATE: 201512
